FAERS Safety Report 10037029 (Version 3)
Quarter: 2014Q2

REPORT INFORMATION
  Report Type: Spontaneous
  Country: US (occurrence: US)
  Receive Date: 20140326
  Receipt Date: 20140501
  Transmission Date: 20141212
  Serious: No
  Sender: FDA-Public Use
  Company Number: US-BIOGENIDEC-2014BI027251

PATIENT
  Age: 44 Year
  Sex: Male

DRUGS (1)
  1. TECFIDERA [Suspect]
     Indication: MULTIPLE SCLEROSIS
     Dates: start: 20131115, end: 20140115

REACTIONS (3)
  - Optic neuritis [Recovered/Resolved]
  - Sinusitis [Recovered/Resolved]
  - Memory impairment [Not Recovered/Not Resolved]
